FAERS Safety Report 15895254 (Version 3)
Quarter: 2019Q2

REPORT INFORMATION
  Report Type: Report from Study
  Country: JP (occurrence: JP)
  Receive Date: 20190131
  Receipt Date: 20190510
  Transmission Date: 20190711
  Serious: Yes (Other)
  Sender: FDA-Public Use
  Company Number: JP-SA-2019SA024142

PATIENT
  Age: 44 Year
  Sex: Male
  Weight: 64.3 kg

DRUGS (4)
  1. CALCIUM FOLINATE [Suspect]
     Active Substance: LEUCOVORIN CALCIUM
     Indication: RECTAL CANCER
     Dosage: 140 MG/M2, QOW
     Route: 065
     Dates: start: 20181212, end: 20190109
  2. FLUOROURACIL. [Suspect]
     Active Substance: FLUOROURACIL
     Indication: RECTAL CANCER
     Dosage: 1700 MG/M2, QOW
     Route: 041
     Dates: start: 20181212, end: 20190109
  3. IRINOTECAN [Suspect]
     Active Substance: IRINOTECAN
     Indication: RECTAL CANCER
     Dosage: 100 MG/M2, QOW
     Route: 065
     Dates: start: 20181212, end: 20190109
  4. AFLIBERCEPT [Suspect]
     Active Substance: AFLIBERCEPT
     Indication: RECTAL CANCER
     Dosage: 4 MG/KG, QOW
     Route: 041
     Dates: start: 20181212, end: 20190109

REACTIONS (1)
  - Anal abscess [Recovering/Resolving]

NARRATIVE: CASE EVENT DATE: 20190116
